FAERS Safety Report 5385245-9 (Version None)
Quarter: 2007Q3

REPORT INFORMATION
  Report Type: 
  Country: None (occurrence: None)
  Receive Date: 20070709
  Receipt Date: 20070709
  Transmission Date: 20080115
  Serious: Yes (Death, Hospitalization)
  Sender: FDA-Public Use
  Company Number: None

PATIENT
  Sex: Female
  Weight: 67 kg

DRUGS (3)
  1. TEMOZOLOMIDE [Suspect]
     Dosage: 3120 MG
  2. NEWCASTLE VIRUS INJECTION [Concomitant]
  3. RESPRIM TABS (800MG SULPHAMETHOXAZOLE + 100MG TRIMETHOPRIM) [Concomitant]

REACTIONS (10)
  - ASTHENIA [None]
  - CHILLS [None]
  - HYPOKALAEMIA [None]
  - INTRACRANIAL TUMOUR HAEMORRHAGE [None]
  - LEUKOPENIA [None]
  - NEUTROPENIA [None]
  - PSEUDOMONAL BACTERAEMIA [None]
  - PYREXIA [None]
  - THROMBOCYTOPENIA [None]
  - TRANSFUSION REACTION [None]
